FAERS Safety Report 8412391-5 (Version None)
Quarter: 2012Q2

REPORT INFORMATION
  Report Type: 
  Country: None (occurrence: None)
  Receive Date: 20120605
  Receipt Date: 20120523
  Transmission Date: 20120825
  Serious: Yes (Other)
  Sender: FDA-Public Use
  Company Number: NL-ELI_LILLY_AND_COMPANY-NL201204005070

PATIENT
  Sex: Female

DRUGS (4)
  1. CYMBALTA [Suspect]
     Indication: DEPRESSION
     Dosage: 60 MG, UNKNOWN
  2. PARACETAMOL/CODEINEFOSFAAT [Concomitant]
     Indication: PAIN
     Dosage: 50010 UNK, UNK
     Route: 048
     Dates: start: 20070101
  3. MIRTAZAPINE [Concomitant]
     Indication: POOR QUALITY SLEEP
     Dosage: UNK, UNKNOWN
     Route: 048
     Dates: start: 20120221, end: 20120327
  4. OXAZEPAM [Concomitant]
     Indication: RESTLESSNESS
     Dosage: 10 MG, UNK
     Route: 048
     Dates: start: 20080101

REACTIONS (1)
  - GENERALISED OEDEMA [None]
